FAERS Safety Report 23270530 (Version 1)
Quarter: 2023Q4

REPORT INFORMATION
  Report Type: Spontaneous
  Country: AU (occurrence: None)
  Receive Date: 20231207
  Receipt Date: 20231207
  Transmission Date: 20240110
  Serious: Yes (Other)
  Sender: FDA-Public Use
  Company Number: AU-ROCHE-3464672

PATIENT
  Age: 86 Year
  Sex: Female

DRUGS (2)
  1. VABYSMO [Suspect]
     Active Substance: FARICIMAB\FARICIMAB-SVOA
     Indication: Macular degeneration
     Dosage: BILATERAL INJECTIONS?6MG/0.05ML
     Route: 050
     Dates: start: 20230517, end: 20231018
  2. VABYSMO [Suspect]
     Active Substance: FARICIMAB\FARICIMAB-SVOA
     Indication: Choroidal neovascularisation

REACTIONS (8)
  - Uveitis [Unknown]
  - Visual acuity reduced [Unknown]
  - Vitreous floaters [Unknown]
  - Vision blurred [Unknown]
  - Eye inflammation [Recovering/Resolving]
  - Anterior chamber inflammation [Recovering/Resolving]
  - Vitreous opacities [Recovering/Resolving]
  - Pseudopapilloedema [Recovering/Resolving]

NARRATIVE: CASE EVENT DATE: 20231123
